FAERS Safety Report 9436993 (Version 3)
Quarter: 2013Q3

REPORT INFORMATION
  Report Type: Spontaneous
  Country: IT (occurrence: IT)
  Receive Date: 20130802
  Receipt Date: 20130924
  Transmission Date: 20140515
  Serious: Yes (Hospitalization)
  Sender: FDA-Public Use
  Company Number: IT-PFIZER INC-2013225506

PATIENT
  Age: 85 Year
  Sex: Male

DRUGS (4)
  1. AMIODARONE HCL [Suspect]
     Indication: CARDIOMYOPATHY
     Dosage: 200 MG, DAILY
     Route: 048
     Dates: start: 20130501, end: 20130620
  2. FUROSEMIDE [Suspect]
     Indication: CARDIOMYOPATHY
     Dosage: 50 MG, DAILY
     Route: 048
     Dates: end: 20130628
  3. BISOPROLOL [Concomitant]
     Dosage: UNK
  4. WARFARIN [Concomitant]
     Dosage: UNK

REACTIONS (2)
  - Bradycardia [Recovering/Resolving]
  - Orthostatic hypotension [Recovering/Resolving]
